FAERS Safety Report 6328110-2 (Version None)
Quarter: 2009Q3

REPORT INFORMATION
  Report Type: 
  Country: None (occurrence: None)
  Receive Date: 20090818
  Receipt Date: 20090707
  Transmission Date: 20100115
  Serious: No
  Sender: FDA-Public Use
  Company Number: WAES 0907USA00925

PATIENT
  Age: 77 Year
  Sex: Female

DRUGS (1)
  1. JANUVIA [Suspect]
     Indication: TYPE 2 DIABETES MELLITUS
     Dosage: 50 MG/DAILY/PO : 100 MG/DAILY/PO
     Route: 048
     Dates: start: 20090201

REACTIONS (4)
  - BLOOD GLUCOSE INCREASED [None]
  - PRURITUS [None]
  - URTICARIA [None]
  - VISION BLURRED [None]
